FAERS Safety Report 19200138 (Version 1)
Quarter: 2021Q2

REPORT INFORMATION
  Report Type: Spontaneous
  Country: US (occurrence: US)
  Receive Date: 20210430
  Receipt Date: 20210430
  Transmission Date: 20210717
  Serious: No
  Sender: FDA-Public Use
  Company Number: US-JNJFOC-20210423901

PATIENT
  Age: 56 Year
  Sex: Female

DRUGS (6)
  1. TYLENOL [Suspect]
     Active Substance: ACETAMINOPHEN
     Indication: DYSPNOEA
  2. TYLENOL [Suspect]
     Active Substance: ACETAMINOPHEN
     Indication: NAUSEA
  3. COVID?19 VACCINE NOS. [Concomitant]
     Active Substance: COVID-19 VACCINE NOS
     Indication: PRODUCT USED FOR UNKNOWN INDICATION
     Dosage: LEFT ARM
     Route: 065
     Dates: start: 20210408
  4. TYLENOL [Suspect]
     Active Substance: ACETAMINOPHEN
     Indication: FATIGUE
     Route: 065
     Dates: start: 20210409
  5. TYLENOL [Suspect]
     Active Substance: ACETAMINOPHEN
     Indication: DIZZINESS
  6. ALBUTEROL [SALBUTAMOL] [Concomitant]
     Active Substance: ALBUTEROL
     Indication: ASTHMA
     Route: 065

REACTIONS (2)
  - Product use in unapproved indication [Unknown]
  - Therapeutic response unexpected [Unknown]

NARRATIVE: CASE EVENT DATE: 20210409
